FAERS Safety Report 5776804-X (Version None)
Quarter: 2008Q2

REPORT INFORMATION
  Report Type: 
  Country: None (occurrence: None)
  Receive Date: 20080616
  Receipt Date: 20080604
  Transmission Date: 20081010
  Serious: Yes (Hospitalization)
  Sender: FDA-Public Use
  Company Number: 2008-01202

PATIENT
  Age: 51 Year
  Sex: Male
  Weight: 117 kg

DRUGS (8)
  1. VELCADE [Suspect]
     Indication: MULTIPLE MYELOMA
     Dosage: 2.6 MG, INTRAVENOUS
     Route: 042
     Dates: start: 20071123, end: 20080208
  2. MORPHINE SULFATE [Concomitant]
  3. LISINOPRIL [Concomitant]
  4. SIMVASTATIN [Concomitant]
  5. CLODRONATE DISODIUM (CLODRONATE DISODIUM) [Concomitant]
  6. ACETAMINOPHEN [Concomitant]
  7. CO-DANTHRAMER (DANTRON, POLOXAMER) [Concomitant]
  8. DEXAMETHASONE [Concomitant]

REACTIONS (6)
  - CRANIAL NERVE PALSIES MULTIPLE [None]
  - DRUG INEFFECTIVE [None]
  - HAEMOGLOBIN DECREASED [None]
  - MUSCULOSKELETAL CHEST PAIN [None]
  - PATHOLOGICAL FRACTURE [None]
  - SPINAL COMPRESSION FRACTURE [None]
